FAERS Safety Report 5521414-2 (Version None)
Quarter: 2007Q4

REPORT INFORMATION
  Report Type: 
  Country: None (occurrence: None)
  Receive Date: 20071119
  Receipt Date: 20071108
  Transmission Date: 20080405
  Serious: Yes (Hospitalization, Other)
  Sender: FDA-Public Use
  Company Number: US-PFIZER INC-2007082191

PATIENT
  Sex: Female
  Weight: 67.8 kg

DRUGS (3)
  1. LIPITOR [Suspect]
     Route: 048
     Dates: start: 20060201, end: 20070925
  2. TOPROL-XL [Concomitant]
  3. WELCHOL [Concomitant]

REACTIONS (4)
  - ABDOMINAL PAIN UPPER [None]
  - HEPATIC ENZYME ABNORMAL [None]
  - HEPATITIS [None]
  - HEPATOMEGALY [None]
